FAERS Safety Report 6233280-0 (Version None)
Quarter: 2009Q2

REPORT INFORMATION
  Report Type: 
  Country: None (occurrence: None)
  Receive Date: 20090617
  Receipt Date: 20090610
  Transmission Date: 20091009
  Serious: Yes (Hospitalization)
  Sender: FDA-Public Use
  Company Number: US-TEVA-FEI2009-1247

PATIENT
  Sex: Female
  Weight: 65.376 kg

DRUGS (1)
  1. PARAGARD COPPER TCU 380A [Suspect]
     Indication: CONTRACEPTION
     Dates: start: 20090201, end: 20090519

REACTIONS (1)
  - TOXIC SHOCK SYNDROME [None]
